FAERS Safety Report 10880154 (Version 1)
Quarter: 2015Q1

REPORT INFORMATION
  Report Type: Spontaneous
  Country: US (occurrence: US)
  Receive Date: 20150302
  Receipt Date: 20150302
  Transmission Date: 20150721
  Serious: No
  Sender: FDA-Public Use
  Company Number: US-PFIZER INC-2015070453

PATIENT
  Sex: Female

DRUGS (3)
  1. VICTOZA [Suspect]
     Active Substance: LIRAGLUTIDE
     Dosage: 1.2 MG, UNK
  2. GLIPIZIDE. [Suspect]
     Active Substance: GLIPIZIDE
     Dosage: UNK
  3. METFORMIN HCL [Suspect]
     Active Substance: METFORMIN HYDROCHLORIDE
     Dosage: UNK

REACTIONS (17)
  - Disturbance in attention [Unknown]
  - Paraesthesia [Unknown]
  - Arthralgia [Unknown]
  - Insomnia [Unknown]
  - Headache [Unknown]
  - Burning sensation [Unknown]
  - Balance disorder [Unknown]
  - Fatigue [Unknown]
  - Pain [Unknown]
  - Blood glucose decreased [Unknown]
  - Fall [Unknown]
  - Decreased appetite [Unknown]
  - Nausea [Unknown]
  - Arthritis [Unknown]
  - Muscular weakness [Unknown]
  - Memory impairment [Unknown]
  - Restlessness [Unknown]
